FAERS Safety Report 20136792 (Version 2)
Quarter: 2022Q2

REPORT INFORMATION
  Report Type: Report from Study
  Country: US (occurrence: US)
  Receive Date: 20211201
  Receipt Date: 20220510
  Transmission Date: 20220721
  Serious: No
  Sender: FDA-Public Use
  Company Number: US-NOVARTISTESTPH-NVSC2021US274721

PATIENT
  Sex: Male

DRUGS (1)
  1. ENTRESTO [Suspect]
     Active Substance: SACUBITRIL\VALSARTAN
     Indication: Product used for unknown indication
     Dosage: 50 MG, BID (24/26)
     Route: 048
     Dates: start: 20210509

REACTIONS (6)
  - Malaise [Unknown]
  - Poor quality sleep [Unknown]
  - Nasopharyngitis [Recovering/Resolving]
  - Weight fluctuation [Unknown]
  - Illness [Recovering/Resolving]
  - Sensitivity to weather change [Unknown]
